FAERS Safety Report 9915962 (Version 1)
Quarter: 2014Q1

REPORT INFORMATION
  Report Type: Spontaneous
  Country: US (occurrence: None)
  Receive Date: 20140219
  Receipt Date: 20140219
  Transmission Date: 20141002
  Serious: Yes (Other)
  Sender: FDA-Public Use
  Company Number: SYM-2014-17560

PATIENT
  Age: 49 Year
  Sex: Male
  Weight: 136.08 kg

DRUGS (2)
  1. XENAZINE [Suspect]
     Indication: HUNTINGTON^S DISEASE
     Dosage: 12.5 MG, 3 IN 1 D, ORAL
     Route: 048
  2. ANTIHYPERTENSIVES (ANTIHYPERTENSIVES) [Concomitant]

REACTIONS (4)
  - Gait disturbance [None]
  - Speech disorder [None]
  - Incorrect dose administered [None]
  - Incorrect drug administration duration [None]
